FAERS Safety Report 4554597-1 (Version None)
Quarter: 2005Q1

REPORT INFORMATION
  Report Type: 
  Country: None (occurrence: None)
  Receive Date: 20050118
  Receipt Date: 20041012
  Transmission Date: 20050727
  Serious: Yes (Hospitalization)
  Sender: FDA-Public Use
  Company Number: US-MERCK-0410USA01720

PATIENT
  Age: 81 Year
  Sex: Female
  Weight: 75 kg

DRUGS (6)
  1. ZOCOR [Suspect]
     Indication: HYPERLIPIDAEMIA
     Route: 048
     Dates: start: 20020610, end: 20040824
  2. ZOCOR [Suspect]
     Indication: BLOOD TRIGLYCERIDES INCREASED
     Route: 048
     Dates: start: 20020610, end: 20040824
  3. LEVOXYL [Concomitant]
     Route: 065
  4. METFORMIN [Concomitant]
     Route: 065
  5. LOPID [Concomitant]
     Indication: LIPIDS INCREASED
     Route: 048
     Dates: start: 20040706
  6. FENOFIBRATE [Concomitant]
     Indication: LIPIDS INCREASED
     Route: 048
     Dates: start: 20040526, end: 20040706

REACTIONS (7)
  - ARTHRALGIA [None]
  - ASTHENIA [None]
  - BACK PAIN [None]
  - DIZZINESS [None]
  - LOSS OF CONSCIOUSNESS [None]
  - MYALGIA [None]
  - PAIN IN EXTREMITY [None]
